FAERS Safety Report 7352035-7 (Version None)
Quarter: 2011Q1

REPORT INFORMATION
  Report Type: 
  Country: None (occurrence: None)
  Receive Date: 20110309
  Receipt Date: 20110309
  Transmission Date: 20110831
  Serious: Yes (Hospitalization)
  Sender: FDA-Public Use
  Company Number: None

PATIENT
  Age: 63 Year
  Sex: Male
  Weight: 91.7 kg

DRUGS (2)
  1. AMOXICILLIN AND CLAVULANATE POTASSIUM [Suspect]
     Dosage: 1 TAB MG BID PO
     Route: 048
     Dates: start: 20101214, end: 20101228
  2. ACETAMINOPHEN W/ CODEINE [Suspect]
     Dosage: 1-2 TABS MG PRN PO
     Route: 048
     Dates: start: 20100126, end: 20101229

REACTIONS (8)
  - DECREASED APPETITE [None]
  - RENAL FAILURE ACUTE [None]
  - NAUSEA [None]
  - URINE OUTPUT DECREASED [None]
  - FATIGUE [None]
  - ASTHENIA [None]
  - CHOLANGITIS [None]
  - HEPATOTOXICITY [None]
